FAERS Safety Report 26084287 (Version 3)
Quarter: 2025Q4

REPORT INFORMATION
  Report Type: Spontaneous
  Country: EG (occurrence: EG)
  Receive Date: 20251124
  Receipt Date: 20251222
  Transmission Date: 20260118
  Serious: Yes (Other)
  Sender: NOVO NORDISK
  Company Number: EG-NOVOPROD-1566806

PATIENT
  Age: 648 Month
  Sex: Female
  Weight: 93 kg

DRUGS (5)
  1. JANUMET [Concomitant]
     Active Substance: METFORMIN HYDROCHLORIDE\SITAGLIPTIN PHOSPHATE
     Indication: Diabetes mellitus
     Dosage: 50/1000 MG(TWICE DAILY)
     Route: 048
  2. NEBIVOLOL HYDROCHLORIDE [Concomitant]
     Active Substance: NEBIVOLOL HYDROCHLORIDE
     Indication: Hypertension
     Dosage: UNK(ONCE DAILY AT NIGHT)
     Route: 048
  3. HYDROCHLOROTHIAZIDE\VALSARTAN [Concomitant]
     Active Substance: HYDROCHLOROTHIAZIDE\VALSARTAN
     Indication: Hypertension
     Dosage: 160/12.5 MG(ONCE DAILY AT MORNING)
     Route: 048
  4. DAPAGLIFLOZIN [Concomitant]
     Active Substance: DAPAGLIFLOZIN
     Indication: Diabetes mellitus
     Dosage: 160/12.5 MG(ONCE DAILY)
     Route: 048
  5. RYZODEG 70/30 [Suspect]
     Active Substance: INSULIN ASPART\INSULIN DEGLUDEC
     Indication: Type 2 diabetes mellitus
     Dosage: 50 IU, QD(30U AT MORNING AND 20U AT NIGHT)
     Route: 058

REACTIONS (8)
  - Neuropathy peripheral [Not Recovered/Not Resolved]
  - Duodenal ulcer [Not Recovered/Not Resolved]
  - Oesophageal ulcer [Not Recovered/Not Resolved]
  - Hypersensitivity [Not Recovered/Not Resolved]
  - Spinal disorder [Not Recovered/Not Resolved]
  - Ligament disorder [Not Recovered/Not Resolved]
  - Nerve injury [Not Recovered/Not Resolved]
  - Varicose vein [Not Recovered/Not Resolved]
